FAERS Safety Report 5547642-8 (Version None)
Quarter: 2007Q4

REPORT INFORMATION
  Report Type: 
  Country: None (occurrence: None)
  Receive Date: 20071211
  Receipt Date: 20071204
  Transmission Date: 20080405
  Serious: Yes (Hospitalization)
  Sender: FDA-Public Use
  Company Number: DE-BOEHRINGER INGELHEIM PHARMACEUTICALS, INC.-2007-DE-07204DE

PATIENT
  Sex: Male

DRUGS (3)
  1. VIRAMUNE [Suspect]
     Indication: HIV INFECTION
     Dosage: 1-0-1
  2. COMBIVIR [Concomitant]
     Dosage: 1-0-1
  3. HALDOL [Concomitant]

REACTIONS (1)
  - ANAEMIA MEGALOBLASTIC [None]
